FAERS Safety Report 7250255-3 (Version None)
Quarter: 2011Q1

REPORT INFORMATION
  Report Type: 
  Country: None (occurrence: None)
  Receive Date: 20110128
  Receipt Date: 20110124
  Transmission Date: 20110831
  Serious: Yes (Hospitalization)
  Sender: FDA-Public Use
  Company Number: US-ALLERGAN-1015374US

PATIENT
  Age: 55 Year
  Sex: Male
  Weight: 79.819 kg

DRUGS (4)
  1. BOTOXA? [Suspect]
     Indication: DYSTONIA
     Dosage: 200 UNITS, SINGLE
     Route: 030
     Dates: start: 20101105, end: 20101105
  2. COZAAR [Concomitant]
     Indication: PRODUCT USED FOR UNKNOWN INDICATION
  3. BOTOXA? [Suspect]
     Dosage: 100 UNITS, SINGLE
     Route: 030
     Dates: start: 20100101, end: 20100101
  4. SINGULAIR [Suspect]
     Indication: PRODUCT USED FOR UNKNOWN INDICATION

REACTIONS (5)
  - DRUG INEFFECTIVE [None]
  - PNEUMOTHORAX [None]
  - DYSPNOEA [None]
  - PYREXIA [None]
  - TOOTH ABSCESS [None]
